FAERS Safety Report 8315473-1 (Version None)
Quarter: 2012Q2

REPORT INFORMATION
  Report Type: 
  Country: None (occurrence: None)
  Receive Date: 20120426
  Receipt Date: 20120417
  Transmission Date: 20120825
  Serious: Yes (Death, Hospitalization, Disabling, Other)
  Sender: FDA-Public Use
  Company Number: US-MPIJNJ-2011-03559

PATIENT
  Sex: Male

DRUGS (5)
  1. VELCADE [Suspect]
     Indication: MULTIPLE MYELOMA
     Dosage: 3 MG, Q3WEEKS
     Route: 042
     Dates: start: 20100628, end: 20100816
  2. DEXAMETHASONE [Suspect]
     Indication: MULTIPLE MYELOMA
  3. PREDNISONE [Suspect]
     Indication: MULTIPLE MYELOMA
     Dosage: 2.5 MG, UNK
  4. VICODIN [Concomitant]
     Indication: PAIN
  5. FLOMAX [Concomitant]
     Indication: BENIGN PROSTATIC HYPERPLASIA

REACTIONS (8)
  - ASPIRATION [None]
  - ILEUS [None]
  - FAECAL VOMITING [None]
  - NEUROPATHY PERIPHERAL [None]
  - THROMBOCYTOPENIA [None]
  - PAIN [None]
  - RESPIRATORY ARREST [None]
  - DECUBITUS ULCER [None]
